FAERS Safety Report 4726021-7 (Version None)
Quarter: 2005Q3

REPORT INFORMATION
  Report Type: 
  Country: None (occurrence: None)
  Receive Date: 20050722
  Receipt Date: 20050722
  Transmission Date: 20060218
  Serious: Yes (Life-Threatening, Hospitalization, Disabling)
  Sender: FDA-Public Use
  Company Number: None

PATIENT
  Age: 61 Year
  Sex: Male
  Weight: 70 kg

DRUGS (1)
  1. ENBREL [Suspect]
     Indication: PSORIATIC ARTHROPATHY
     Dates: start: 20020101, end: 20050101

REACTIONS (2)
  - CARDIAC ARREST [None]
  - HYPOXIC ENCEPHALOPATHY [None]
